FAERS Safety Report 4351165-1 (Version None)
Quarter: 2004Q2

REPORT INFORMATION
  Report Type: 
  Country: None (occurrence: None)
  Receive Date: 20040428
  Receipt Date: 20040106
  Transmission Date: 20050107
  Serious: Yes (Other)
  Sender: FDA-Public Use
  Company Number: US-JNJFOC-20040101105

PATIENT
  Sex: Male

DRUGS (3)
  1. ULTRAM [Suspect]
     Indication: BACK PAIN
     Dosage: ORAL
     Route: 048
  2. DIAVAN (VALSARTAN) [Concomitant]
  3. ALLEGRA [Concomitant]

REACTIONS (1)
  - CONVULSION [None]
